FAERS Safety Report 10149812 (Version 2)
Quarter: 2014Q2

REPORT INFORMATION
  Report Type: Spontaneous
  Country: QA (occurrence: QA)
  Receive Date: 20140502
  Receipt Date: 20140502
  Transmission Date: 20141212
  Serious: Yes (Life-Threatening, Hospitalization, Other)
  Sender: FDA-Public Use
  Company Number: PHHY2014QA045157

PATIENT
  Sex: Male

DRUGS (3)
  1. TASIGNA [Suspect]
     Indication: CHRONIC MYELOID LEUKAEMIA
     Dosage: 400 MG, BID
  2. TASIGNA [Suspect]
     Dosage: 200 MG, BID
     Dates: start: 20140408
  3. KEPRA [Concomitant]
     Indication: EPILEPSY

REACTIONS (3)
  - Infection [Unknown]
  - Sepsis [Unknown]
  - Thrombocytopenia [Unknown]
